FAERS Safety Report 7204997-6 (Version None)
Quarter: 2010Q4

REPORT INFORMATION
  Report Type: 
  Country: None (occurrence: None)
  Receive Date: 20101230
  Receipt Date: 20101220
  Transmission Date: 20110411
  Serious: Yes (Disabling)
  Sender: FDA-Public Use
  Company Number: PHHY2010IT80352

PATIENT
  Sex: Female

DRUGS (4)
  1. ZOMETA [Suspect]
     Indication: METASTASES TO BONE
     Dosage: 4 MG, QMO
     Route: 042
     Dates: start: 20090305, end: 20091005
  2. AVASTIN [Concomitant]
     Indication: BREAST CANCER
     Dosage: 1 TIMES PER WEEK
     Dates: start: 20090305, end: 20091008
  3. AVASTIN [Concomitant]
     Dosage: 2 TIMES PER WEEK
     Dates: start: 20091101, end: 20100906
  4. TAXOL [Concomitant]
     Indication: BREAST CANCER
     Dosage: 1 TIMES PER WEEK
     Dates: start: 20090305, end: 20091008

REACTIONS (1)
  - OSTEONECROSIS OF JAW [None]
